FAERS Safety Report 11733357 (Version 1)
Quarter: 2015Q4

REPORT INFORMATION
  Report Type: Spontaneous
  Country: US (occurrence: US)
  Receive Date: 20151110
  Receipt Date: 20151110
  Transmission Date: 20160304
  Serious: No
  Sender: FDA-Public Use
  Company Number: US-ELI_LILLY_AND_COMPANY-US201111004571

PATIENT
  Age: 63 Year
  Sex: Female

DRUGS (2)
  1. FORTEO [Suspect]
     Active Substance: TERIPARATIDE
     Dosage: 20 UG, QD
  2. FORTEO [Suspect]
     Active Substance: TERIPARATIDE
     Indication: OSTEOPOROSIS
     Dosage: 20 UG, QD
     Dates: start: 20111019, end: 20111105

REACTIONS (13)
  - Musculoskeletal stiffness [Unknown]
  - Adverse drug reaction [Unknown]
  - Mobility decreased [Recovering/Resolving]
  - Flatulence [Unknown]
  - Dizziness [Recovered/Resolved]
  - Arthralgia [Unknown]
  - Nausea [Unknown]
  - Abdominal distension [Unknown]
  - Pain [Recovering/Resolving]
  - Arthralgia [Recovering/Resolving]
  - Muscle spasms [Unknown]
  - Headache [Not Recovered/Not Resolved]
  - Nausea [Recovered/Resolved]
